FAERS Safety Report 15526873 (Version 1)
Quarter: 2018Q4

REPORT INFORMATION
  Report Type: Report from Study
  Country: IT (occurrence: IT)
  Receive Date: 20181018
  Receipt Date: 20181018
  Transmission Date: 20190205
  Serious: Yes (Hospitalization)
  Sender: FDA-Public Use
  Company Number: IT-TEVA-2018-IT-965668

PATIENT
  Age: 32 Year
  Sex: Female

DRUGS (2)
  1. ALDOMET 250 MG COMPRESSE RIVESTITE CON FILM [Concomitant]
     Route: 065
  2. AMOXICILLIN TRIHYDRATE [Suspect]
     Active Substance: AMOXICILLIN
     Indication: RESPIRATORY TRACT INFECTION
     Route: 048

REACTIONS (7)
  - Dyspnoea [Recovering/Resolving]
  - Oxygen saturation decreased [Recovering/Resolving]
  - Bronchospasm [Recovering/Resolving]
  - Anaphylactic reaction [Recovering/Resolving]
  - Tachycardia [Recovering/Resolving]
  - Pruritus generalised [Recovering/Resolving]
  - Hypotension [Recovering/Resolving]

NARRATIVE: CASE EVENT DATE: 20180919
